FAERS Safety Report 14957745 (Version 2)
Quarter: 2020Q4

REPORT INFORMATION
  Report Type: Spontaneous
  Country: US (occurrence: US)
  Receive Date: 20180531
  Receipt Date: 20201201
  Transmission Date: 20210113
  Serious: Yes (Other)
  Sender: FDA-Public Use
  Company Number: US-SA-2018SA003100

PATIENT

DRUGS (7)
  1. ADRIAMYCIN [Concomitant]
     Active Substance: DOXORUBICIN HYDROCHLORIDE
     Indication: BREAST CANCER FEMALE
  2. TAXOTERE [Suspect]
     Active Substance: DOCETAXEL
     Indication: BREAST CANCER FEMALE
     Dosage: UNK UNK,QCY
     Dates: start: 20091217, end: 20091217
  3. NEOSAR [Concomitant]
     Active Substance: CYCLOPHOSPHAMIDE
     Indication: BREAST CANCER FEMALE
  4. DAUNORUBICIN [Concomitant]
     Active Substance: DAUNORUBICIN
     Indication: BREAST CANCER FEMALE
  5. TAXOTERE [Suspect]
     Active Substance: DOCETAXEL
     Dosage: UNK UNK,QCY
     Dates: start: 20100501, end: 20100501
  6. PRILOSEC [Concomitant]
     Active Substance: OMEPRAZOLE MAGNESIUM
     Dosage: UNK
     Dates: start: 20050101
  7. CYTOXAN [Concomitant]
     Active Substance: CYCLOPHOSPHAMIDE
     Indication: BREAST CANCER FEMALE

REACTIONS (6)
  - Emotional distress [Unknown]
  - Impaired quality of life [Unknown]
  - Alopecia [Recovering/Resolving]
  - Psychological trauma [Unknown]
  - Anxiety [Unknown]
  - Pain [Unknown]

NARRATIVE: CASE EVENT DATE: 20100117
